FAERS Safety Report 21596956 (Version 1)
Quarter: 2022Q4

REPORT INFORMATION
  Report Type: Spontaneous
  Country: US (occurrence: US)
  Receive Date: 20221115
  Receipt Date: 20221115
  Transmission Date: 20230113
  Serious: No
  Sender: FDA-Public Use
  Company Number: US-AMNEAL PHARMACEUTICALS-2022-AMRX-00192

PATIENT
  Age: 17 Year
  Sex: Male

DRUGS (3)
  1. ISOTRETINOIN [Suspect]
     Active Substance: ISOTRETINOIN
     Indication: Acne
     Dosage: 60 MILLIGRAM, 1X/DAY FOR 1 WEEK
     Route: 048
     Dates: start: 20211221, end: 202112
  2. ISOTRETINOIN [Suspect]
     Active Substance: ISOTRETINOIN
     Dosage: 30 MILLIGRAM, DAILY FOR 2 WEEKS
     Route: 048
     Dates: start: 202112, end: 202201
  3. ISOTRETINOIN [Suspect]
     Active Substance: ISOTRETINOIN
     Dosage: 60 MILLIGRAM, 1X/DAY FOR MORE 1 TO 2 WEEKS
     Route: 048
     Dates: start: 202201, end: 2022

REACTIONS (5)
  - Epistaxis [Recovered/Resolved]
  - Chapped lips [Recovered/Resolved]
  - Dry skin [Recovered/Resolved]
  - Mood swings [Recovered/Resolved]
  - Disturbance in attention [Recovered/Resolved]

NARRATIVE: CASE EVENT DATE: 20211201
